FAERS Safety Report 9158348 (Version 1)
Quarter: 2013Q1

REPORT INFORMATION
  Report Type: Report from Study
  Country: DE (occurrence: DE)
  Receive Date: 20130312
  Receipt Date: 20130312
  Transmission Date: 20140127
  Serious: Yes (Death, Hospitalization)
  Sender: FDA-Public Use
  Company Number: DE-ROCHE-1193904

PATIENT
  Age: 80 Year
  Sex: Female
  Weight: 89 kg

DRUGS (4)
  1. CAPECITABINE [Suspect]
     Indication: BREAST CANCER
     Dosage: LAST DOSE PRIOR TO SAE 19/FEB/2013
     Route: 048
     Dates: start: 20130116
  2. PACLITAXEL [Suspect]
     Indication: BREAST CANCER
     Dosage: LAST DOSE PRIOR TO SAE 19/FEB/2013
     Route: 042
     Dates: start: 20130116
  3. EUTHYROX [Concomitant]
     Route: 065
     Dates: start: 1990
  4. ALLOPURINOL [Concomitant]
     Route: 065
     Dates: start: 2012

REACTIONS (1)
  - Dehydration [Fatal]
